FAERS Safety Report 10149684 (Version 1)
Quarter: 2014Q2

REPORT INFORMATION
  Report Type: Spontaneous
  Country: US (occurrence: None)
  Receive Date: 20140501
  Receipt Date: 20140501
  Transmission Date: 20141212
  Serious: Yes (Hospitalization)
  Sender: FDA-Public Use
  Company Number: None

PATIENT
  Age: 62 Year
  Sex: Male

DRUGS (12)
  1. TACROLIMUS [Suspect]
     Indication: IMMUNOSUPPRESSANT DRUG THERAPY
     Route: 048
     Dates: start: 20130904
  2. AZATHIOPRINE [Concomitant]
  3. CALCIUM [Concomitant]
  4. GLUCONATE [Concomitant]
  5. DAPSONE [Concomitant]
  6. MAGNESIUM [Concomitant]
  7. SULFATE [Concomitant]
  8. METHADONE [Concomitant]
  9. PREDNISOLONE [Concomitant]
  10. TACROLIMUS [Concomitant]
  11. TRAMADOL [Concomitant]
  12. SUMATRIPTAN [Concomitant]

REACTIONS (3)
  - Blood potassium increased [None]
  - Electrocardiogram T wave peaked [None]
  - Anion gap increased [None]
